FAERS Safety Report 13675774 (Version 1)
Quarter: 2017Q2

REPORT INFORMATION
  Report Type: Spontaneous
  Country: US (occurrence: US)
  Receive Date: 20170621
  Receipt Date: 20170621
  Transmission Date: 20170830
  Serious: No
  Sender: FDA-Public Use
  Company Number: US-TEVA-778934USA

PATIENT
  Age: 3 Year
  Sex: Female
  Weight: 11.35 kg

DRUGS (1)
  1. QVAR [Suspect]
     Active Substance: BECLOMETHASONE DIPROPIONATE
     Indication: ASTHMA
     Route: 055

REACTIONS (2)
  - Hypersensitivity [Unknown]
  - Drug administered to patient of inappropriate age [Unknown]
